FAERS Safety Report 10227346 (Version 1)
Quarter: 2014Q2

REPORT INFORMATION
  Report Type: Spontaneous
  Country: US (occurrence: None)
  Receive Date: 20140609
  Receipt Date: 20140609
  Transmission Date: 20141212
  Serious: Yes (Hospitalization)
  Sender: FDA-Public Use
  Company Number: None

PATIENT
  Age: 71 Year
  Sex: Female

DRUGS (3)
  1. SOVALDI [Suspect]
     Dosage: 1 TABLET QD ORAL
     Route: 048
  2. PEGASYS 180 MCG/0.5 ML PFS 4X 0.5 ML KIT [Concomitant]
  3. RIBAVIRIN 600MG [Concomitant]

REACTIONS (2)
  - Rash [None]
  - Stomatitis [None]
